FAERS Safety Report 25802333 (Version 2)
Quarter: 2025Q3

REPORT INFORMATION
  Report Type: Report from Study
  Country: CA (occurrence: CA)
  Receive Date: 20250915
  Receipt Date: 20250926
  Transmission Date: 20251021
  Serious: Yes (Other)
  Sender: MYLAN
  Company Number: CA-MYLANLABS-2025M1077201

PATIENT
  Sex: Female

DRUGS (20)
  1. CELECOXIB [Suspect]
     Active Substance: CELECOXIB
     Indication: Psoriatic arthropathy
     Dosage: 1 DOSAGE FORM, BID (TWICE A DAY)
     Dates: start: 202410
  2. CELECOXIB [Suspect]
     Active Substance: CELECOXIB
     Dosage: 1 DOSAGE FORM, BID (TWICE A DAY)
     Route: 065
     Dates: start: 202410
  3. CELECOXIB [Suspect]
     Active Substance: CELECOXIB
     Dosage: 1 DOSAGE FORM, BID (TWICE A DAY)
     Route: 065
     Dates: start: 202410
  4. CELECOXIB [Suspect]
     Active Substance: CELECOXIB
     Dosage: 1 DOSAGE FORM, BID (TWICE A DAY)
     Dates: start: 202410
  5. METHOTREXATE [Suspect]
     Active Substance: METHOTREXATE
     Indication: Psoriatic arthropathy
     Dosage: 6 DOSAGE FORM, QW (ONCE WEEKLY)
     Dates: start: 202410
  6. METHOTREXATE [Suspect]
     Active Substance: METHOTREXATE
     Dosage: 6 DOSAGE FORM, QW (ONCE WEEKLY)
     Route: 065
     Dates: start: 202410
  7. METHOTREXATE [Suspect]
     Active Substance: METHOTREXATE
     Dosage: 6 DOSAGE FORM, QW (ONCE WEEKLY)
     Route: 065
     Dates: start: 202410
  8. METHOTREXATE [Suspect]
     Active Substance: METHOTREXATE
     Dosage: 6 DOSAGE FORM, QW (ONCE WEEKLY)
     Dates: start: 202410
  9. FOLIC ACID [Concomitant]
     Active Substance: FOLIC ACID
     Indication: Psoriatic arthropathy
     Dosage: 1 DOSAGE FORM, QD (ONCE DAILY)
     Dates: start: 202410
  10. FOLIC ACID [Concomitant]
     Active Substance: FOLIC ACID
     Dosage: 1 DOSAGE FORM, QD (ONCE DAILY)
     Route: 065
     Dates: start: 202410
  11. FOLIC ACID [Concomitant]
     Active Substance: FOLIC ACID
     Dosage: 1 DOSAGE FORM, QD (ONCE DAILY)
     Route: 065
     Dates: start: 202410
  12. FOLIC ACID [Concomitant]
     Active Substance: FOLIC ACID
     Dosage: 1 DOSAGE FORM, QD (ONCE DAILY)
     Dates: start: 202410
  13. HYDROXYCHLOROQUINE [Concomitant]
     Active Substance: HYDROXYCHLOROQUINE
     Indication: Psoriatic arthropathy
     Dosage: UNK, QD (1.5 TAB, ONCE DAILY)
     Dates: start: 202507
  14. HYDROXYCHLOROQUINE [Concomitant]
     Active Substance: HYDROXYCHLOROQUINE
     Dosage: UNK, QD (1.5 TAB, ONCE DAILY)
     Route: 065
     Dates: start: 202507
  15. HYDROXYCHLOROQUINE [Concomitant]
     Active Substance: HYDROXYCHLOROQUINE
     Dosage: UNK, QD (1.5 TAB, ONCE DAILY)
     Route: 065
     Dates: start: 202507
  16. HYDROXYCHLOROQUINE [Concomitant]
     Active Substance: HYDROXYCHLOROQUINE
     Dosage: UNK, QD (1.5 TAB, ONCE DAILY)
     Dates: start: 202507
  17. DICLOFENAC [Concomitant]
     Active Substance: DICLOFENAC
  18. DICLOFENAC [Concomitant]
     Active Substance: DICLOFENAC
     Route: 061
  19. DICLOFENAC [Concomitant]
     Active Substance: DICLOFENAC
     Route: 061
  20. DICLOFENAC [Concomitant]
     Active Substance: DICLOFENAC

REACTIONS (2)
  - Arthritis [Unknown]
  - Therapeutic product effect incomplete [Unknown]
